FAERS Safety Report 20146626 (Version 2)
Quarter: 2022Q1

REPORT INFORMATION
  Report Type: Report from Study
  Country: CO (occurrence: CO)
  Receive Date: 20211203
  Receipt Date: 20220208
  Transmission Date: 20220423
  Serious: Yes (Other)
  Sender: FDA-Public Use
  Company Number: CO-NOVARTISPH-NVSC2021CO274734

PATIENT
  Sex: Male

DRUGS (1)
  1. OMNITROPE [Suspect]
     Active Substance: SOMATROPIN
     Indication: Growth hormone deficiency
     Dosage: UNK UNK, QD
     Route: 058
     Dates: start: 20190709

REACTIONS (3)
  - Hypothalamo-pituitary disorder [Unknown]
  - Thyroid disorder [Unknown]
  - Pigmentation disorder [Unknown]
